FAERS Safety Report 11149497 (Version 5)
Quarter: 2017Q1

REPORT INFORMATION
  Report Type: Spontaneous
  Country: US (occurrence: US)
  Receive Date: 20150529
  Receipt Date: 20170203
  Transmission Date: 20170428
  Serious: Yes (Other)
  Sender: FDA-Public Use
  Company Number: US-BIOMARINAP-US-2015-106467

PATIENT
  Sex: Male

DRUGS (1)
  1. ALDURAZYME [Suspect]
     Active Substance: LARONIDASE
     Indication: MUCOPOLYSACCHARIDOSIS I
     Dosage: 14.5 MG, QW
     Route: 042
     Dates: start: 20030624

REACTIONS (7)
  - Arthropathy [Recovering/Resolving]
  - Respiratory tract infection [Not Recovered/Not Resolved]
  - Mobility decreased [Recovering/Resolving]
  - Disease progression [Recovering/Resolving]
  - Back disorder [Recovering/Resolving]
  - Intervertebral disc protrusion [Recovering/Resolving]
  - Gastroenteritis viral [Unknown]
